FAERS Safety Report 5199298-4 (Version None)
Quarter: 2006Q4

REPORT INFORMATION
  Report Type: 
  Country: None (occurrence: None)
  Receive Date: 20061016
  Receipt Date: 20060616
  Transmission Date: 20070319
  Serious: No
  Sender: FDA-Public Use
  Company Number: 2006SP002438

PATIENT
  Age: 32 Year
  Sex: Female
  Weight: 70 kg

DRUGS (4)
  1. LUNESTA [Suspect]
     Dosage: ORAL
     Route: 048
  2. PAXIL [Concomitant]
  3. FLEXERIL [Concomitant]
  4. ULTRAM [Concomitant]

REACTIONS (2)
  - PARASOMNIA [None]
  - SLEEP WALKING [None]
